FAERS Safety Report 8466119-3 (Version None)
Quarter: 2012Q2

REPORT INFORMATION
  Report Type: 
  Country: None (occurrence: None)
  Receive Date: 20120626
  Receipt Date: 20120622
  Transmission Date: 20120825
  Serious: Yes (Other)
  Sender: FDA-Public Use
  Company Number: RS-BAYER-2012-046079

PATIENT
  Sex: Male

DRUGS (1)
  1. LEVITRA [Suspect]
     Dosage: 10 MG EACH TIME (TOTAL OF 20MG)
     Route: 048
     Dates: start: 20120401

REACTIONS (16)
  - HEART RATE INCREASED [None]
  - TINNITUS [None]
  - DISORIENTATION [None]
  - CONFUSIONAL STATE [None]
  - INTRAOCULAR PRESSURE INCREASED [None]
  - FEELING HOT [None]
  - VISION BLURRED [None]
  - EXTRASYSTOLES [None]
  - HEADACHE [None]
  - NAUSEA [None]
  - EYE PAIN [None]
  - VERTIGO [None]
  - BLOOD PRESSURE DIASTOLIC DECREASED [None]
  - PHOTOPHOBIA [None]
  - HALLUCINATION, VISUAL [None]
  - ERYTHEMA [None]
